FAERS Safety Report 15046160 (Version 1)
Quarter: 2018Q2

REPORT INFORMATION
  Report Type: Spontaneous
  Country: BR (occurrence: BR)
  Receive Date: 20180621
  Receipt Date: 20180621
  Transmission Date: 20180711
  Serious: Yes (Hospitalization, Other)
  Sender: FDA-Public Use
  Company Number: BR-B.I. PHARMACEUTICALS,INC./RIDGEFIELD-2018-BI-030657

PATIENT
  Age: 85 Year
  Sex: Female
  Weight: 73 kg

DRUGS (7)
  1. ATENSINA [Suspect]
     Active Substance: CLONIDINE
     Route: 048
  2. ESPIRONOLACTONA [Concomitant]
     Active Substance: SPIRONOLACTONE
     Indication: PULMONARY OEDEMA
     Route: 048
  3. AAS [Concomitant]
     Active Substance: ASPIRIN
     Indication: ANTICOAGULANT THERAPY
     Route: 048
  4. ATENSINA [Suspect]
     Active Substance: CLONIDINE
     Indication: PRODUCT USED FOR UNKNOWN INDICATION
     Route: 048
     Dates: start: 2017
  5. ATORVASTATINA [Concomitant]
     Active Substance: ATORVASTATIN
     Indication: PRODUCT USED FOR UNKNOWN INDICATION
     Route: 048
     Dates: start: 20180607
  6. GLIFAGE [Concomitant]
     Active Substance: METFORMIN HYDROCHLORIDE
     Indication: DIABETES MELLITUS
     Route: 048
  7. NAPRIX [Concomitant]
     Active Substance: RAMIPRIL
     Indication: PRODUCT USED FOR UNKNOWN INDICATION
     Dosage: STRENGTH: AND DOSE:5/5 MILLIGRAM
     Route: 048
     Dates: start: 2016

REACTIONS (6)
  - Facial paralysis [Recovered/Resolved]
  - Monoplegia [Unknown]
  - Hypertension [Recovered/Resolved]
  - Ischaemic stroke [Not Recovered/Not Resolved]
  - Infection [Unknown]
  - Fall [Unknown]

NARRATIVE: CASE EVENT DATE: 20180526
